FAERS Safety Report 6967204-5 (Version None)
Quarter: 2010Q3

REPORT INFORMATION
  Report Type: 
  Country: None (occurrence: None)
  Receive Date: 20100901
  Receipt Date: 20100817
  Transmission Date: 20110219
  Serious: Yes (Other)
  Sender: FDA-Public Use
  Company Number: BR-1183089

PATIENT
  Age: 32 Year
  Sex: Male

DRUGS (9)
  1. MAXIDEX [Suspect]
     Indication: SEBORRHOEIC DERMATITIS
     Dosage: QD TO BID, TOPICAL
     Route: 061
     Dates: start: 20060601, end: 20100801
  2. LACRIFILM (CARMELLOSE) [Concomitant]
  3. FRESH TEARS (TEARS PLUS) [Concomitant]
  4. OPTIVE (OPTIVE) [Concomitant]
  5. BLEPHAGEL (BLEPHAGEL) [Concomitant]
  6. FLAXSEED OIL (LINUM USITATISSIMUM SEED OIL) [Concomitant]
  7. ELIDEL [Concomitant]
  8. ITRACONAZOLE [Concomitant]
  9. ADVANTAN (METHYLPREDNISOLONE ACEPONATE) [Concomitant]

REACTIONS (4)
  - CATARACT [None]
  - PHOTOPHOBIA [None]
  - VISION BLURRED [None]
  - VISUAL ACUITY REDUCED [None]
